FAERS Safety Report 8578853-5 (Version None)
Quarter: 2012Q3

REPORT INFORMATION
  Report Type: 
  Country: None (occurrence: None)
  Receive Date: 20120808
  Receipt Date: 20120808
  Transmission Date: 20120928
  Serious: Yes (Hospitalization)
  Sender: FDA-Public Use
  Company Number: PHHY2012AU066485

PATIENT
  Sex: Male

DRUGS (2)
  1. CLOZARIL [Suspect]
     Dosage: 800 MG, UNK
     Route: 048
     Dates: start: 20041005
  2. CLOZARIL [Suspect]
     Dosage: 250 MG, UNK
     Route: 048
     Dates: start: 20120808

REACTIONS (3)
  - SMALL CELL LUNG CANCER STAGE UNSPECIFIED [None]
  - PULMONARY MASS [None]
  - EMPHYSEMA [None]
